FAERS Safety Report 8461992-7 (Version None)
Quarter: 2012Q2

REPORT INFORMATION
  Report Type: 
  Country: None (occurrence: None)
  Receive Date: 20120625
  Receipt Date: 20120614
  Transmission Date: 20120825
  Serious: Yes (Hospitalization, Other)
  Sender: FDA-Public Use
  Company Number: US-JNJFOC-20120607727

PATIENT
  Age: 63 Year
  Sex: Male
  Weight: 68 kg

DRUGS (7)
  1. TAMSULOSIN HCL [Concomitant]
     Route: 065
     Dates: start: 20120401
  2. REMICADE [Suspect]
     Route: 042
  3. REMICADE [Suspect]
     Route: 042
     Dates: start: 20110101
  4. IMODIUM [Concomitant]
     Route: 065
  5. REMICADE [Suspect]
     Indication: CROHN'S DISEASE
     Route: 042
     Dates: start: 20120613, end: 20120614
  6. HYDROCORTISONE [Concomitant]
     Indication: PREMEDICATION
     Route: 042
     Dates: start: 20120613
  7. CANASA [Concomitant]
     Route: 065

REACTIONS (13)
  - HEMIPARESIS [None]
  - DEHYDRATION [None]
  - CEREBROVASCULAR ACCIDENT [None]
  - INFUSION RELATED REACTION [None]
  - CHILLS [None]
  - TORTICOLLIS [None]
  - TACHYCARDIA [None]
  - CHEST PAIN [None]
  - IMPAIRED HEALING [None]
  - FLUSHING [None]
  - CEREBRAL HAEMORRHAGE [None]
  - HERNIA [None]
  - DRUG INEFFECTIVE [None]
